FAERS Safety Report 10305954 (Version 1)
Quarter: 2014Q3

REPORT INFORMATION
  Report Type: Spontaneous
  Country: GB (occurrence: None)
  Receive Date: 20140711
  Receipt Date: 20140711
  Transmission Date: 20150326
  Serious: Yes (Other)
  Sender: FDA-Public Use
  Company Number: GB-H14001-14-00171

PATIENT
  Age: 51 Year
  Sex: Female

DRUGS (8)
  1. MULTIVITAMIN (MULTIVAMINS) (ERGOCALCIFEROL, ASCORBIC ACID, FOLIC ACID, THIAMINE HYDROCHLORIDE, RETINOL, RIBOFLAVIN, NICOTINAMIDE, PANTHENOL) [Concomitant]
  2. FERROUS FUMARATE (FERROUS FUMARATE) (FERROUS FUMARATE) [Concomitant]
  3. MICRONOR (NORETHISTERONE) (NORETHISTERONE) [Concomitant]
  4. ANAESTHETIC (OTIDIN) (PHENAZONE, TETRACAINE HYDROCHLORIDE) [Concomitant]
  5. MIRENA (LEVONORGESTREL) (LEVONORGESTREL) [Concomitant]
  6. IBUPROFEN (IBUPROFEN) (IBUPROFEN) [Concomitant]
     Active Substance: IBUPROFEN
  7. AMOXICILLIN/CLAVULANATE POTASSIUM [Suspect]
     Active Substance: AMOXICILLIN\CLAVULANATE POTASSIUM
     Indication: INFECTION
     Route: 048
     Dates: start: 20140609, end: 20140616
  8. NAPROXEN (NAPROXEN) (NAPROXEN) [Concomitant]
     Active Substance: NAPROXEN

REACTIONS (16)
  - Hypersensitivity [None]
  - Peripheral swelling [None]
  - Urticaria [None]
  - Cough [None]
  - Rash pruritic [None]
  - Rash erythematous [None]
  - Erythema [None]
  - Angioedema [None]
  - Pruritus [None]
  - Rash macular [None]
  - Lip swelling [None]
  - Throat irritation [None]
  - Eyelid oedema [None]
  - Burning sensation [None]
  - Dyspepsia [None]
  - Erythema multiforme [None]

NARRATIVE: CASE EVENT DATE: 20140619
